FAERS Safety Report 10227823 (Version 1)
Quarter: 2014Q2

REPORT INFORMATION
  Report Type: Spontaneous
  Country: US (occurrence: None)
  Receive Date: 20140609
  Receipt Date: 20140609
  Transmission Date: 20141212
  Serious: Yes (Disabling)
  Sender: FDA-Public Use
  Company Number: None

PATIENT
  Age: 31 Year
  Sex: Female
  Weight: 56.7 kg

DRUGS (1)
  1. MIRENA [Suspect]

REACTIONS (10)
  - Pneumonia [None]
  - Visual impairment [None]
  - Haemorrhage [None]
  - Breast tenderness [None]
  - Breast mass [None]
  - Chest pain [None]
  - Fatigue [None]
  - Dyspnoea [None]
  - Gastric disorder [None]
  - Autoimmune disorder [None]
